FAERS Safety Report 6809506-9 (Version None)
Quarter: 2010Q2

REPORT INFORMATION
  Report Type: 
  Country: None (occurrence: None)
  Receive Date: 20100630
  Receipt Date: 20100625
  Transmission Date: 20101027
  Serious: Yes (Death, Other)
  Sender: FDA-Public Use
  Company Number: US-SANOFI-AVENTIS-2010SA037401

PATIENT
  Age: 51 Year
  Sex: Male

DRUGS (7)
  1. LOVENOX [Suspect]
     Route: 065
  2. PLAVIX [Suspect]
     Route: 048
  3. HEPARIN [Suspect]
     Indication: ACUTE MYOCARDIAL INFARCTION
     Dosage: DOSE:4200 UNIT(S)
     Route: 051
     Dates: start: 20071201
  4. HEPARIN [Suspect]
     Dosage: DOSE:5000 UNIT(S)
     Dates: start: 20071219, end: 20071219
  5. COREG [Concomitant]
     Dates: start: 20071205
  6. AMIODARONE [Concomitant]
  7. ASPIRIN [Concomitant]

REACTIONS (16)
  - ACUTE MYOCARDIAL INFARCTION [None]
  - ANAEMIA [None]
  - CARDIAC FAILURE CONGESTIVE [None]
  - CARDIOGENIC SHOCK [None]
  - CARDIOMYOPATHY [None]
  - CORONARY ARTERY DISEASE [None]
  - HYPOTENSION [None]
  - MULTI-ORGAN FAILURE [None]
  - PNEUMONIA [None]
  - PULMONARY OEDEMA [None]
  - RENAL FAILURE ACUTE [None]
  - RESPIRATORY FAILURE [None]
  - SEPSIS [None]
  - UNRESPONSIVE TO STIMULI [None]
  - VENTRICULAR EXTRASYSTOLES [None]
  - WEANING FAILURE [None]
